FAERS Safety Report 4525465-6 (Version None)
Quarter: 2004Q4

REPORT INFORMATION
  Report Type: 
  Country: None (occurrence: None)
  Receive Date: 20041108
  Receipt Date: 20040607
  Transmission Date: 20050328
  Serious: Yes (Other)
  Sender: FDA-Public Use
  Company Number: US-JNJFOC-20040707213

PATIENT
  Age: 33 Year
  Sex: Male

DRUGS (1)
  1. ACETAMINOPHEN [Suspect]
     Indication: SUICIDE ATTEMPT
     Dosage: ^150 PILLS^
     Dates: start: 20040501, end: 20040501

REACTIONS (1)
  - INTENTIONAL OVERDOSE [None]
